FAERS Safety Report 23110169 (Version 1)
Quarter: 2023Q4

REPORT INFORMATION
  Report Type: Spontaneous
  Country: US (occurrence: US)
  Receive Date: 20231026
  Receipt Date: 20231026
  Transmission Date: 20240110
  Serious: Yes (Hospitalization)
  Sender: FDA-Public Use
  Company Number: US-ELI_LILLY_AND_COMPANY-US202310011493

PATIENT
  Sex: Female

DRUGS (1)
  1. VERZENIO [Suspect]
     Active Substance: ABEMACICLIB
     Indication: Ovarian cancer
     Dosage: 150 MG, BID
     Route: 048

REACTIONS (4)
  - Large intestinal obstruction [Unknown]
  - Off label use [Unknown]
  - Nausea [Unknown]
  - Fatigue [Unknown]
